FAERS Safety Report 8791043 (Version 1)
Quarter: 2012Q4

REPORT INFORMATION
  Report Type: 
  Country: DE (occurrence: None)
  Receive Date: 20120910
  Receipt Date: 20120910
  Transmission Date: 20130627
  Serious: Yes (Other)
  Sender: FDA-Public Use
  Company Number: AUR-APL-2012-03789

PATIENT
  Age: 36 Year
  Sex: Female
  Weight: 61 kg

DRUGS (2)
  1. SUMATRIPTAN [Suspect]
     Indication: MIGRAINE
     Dosage: ON DEMAND, ORAL
     Route: 048
     Dates: start: 20110609, end: 20111007
  2. FOLIO FORTE [Concomitant]

REACTIONS (1)
  - Exposure during pregnancy [None]
